FAERS Safety Report 9800119 (Version 2)
Quarter: 2014Q1

REPORT INFORMATION
  Report Type: Spontaneous
  Country: US (occurrence: US)
  Receive Date: 20140106
  Receipt Date: 20140106
  Transmission Date: 20141002
  Serious: No
  Sender: FDA-Public Use
  Company Number: US-GILEAD-2010-0032572

PATIENT
  Age: 57 Year
  Sex: Female
  Weight: 141.52 kg

DRUGS (26)
  1. LETAIRIS [Suspect]
     Indication: PULMONARY HYPERTENSION
     Route: 048
     Dates: start: 20091113
  2. ADCIRCA [Concomitant]
     Indication: PULMONARY ARTERIAL HYPERTENSION
     Dates: start: 20100414
  3. ZOCOR [Concomitant]
  4. METOPROLOL [Concomitant]
  5. LASIX [Concomitant]
  6. PLAVIX [Concomitant]
  7. ASPIRIN [Concomitant]
  8. OXYGEN [Concomitant]
  9. XOPENEX HFA [Concomitant]
  10. DUONEB [Concomitant]
  11. SINGULAIR [Concomitant]
  12. LANTUS [Concomitant]
  13. HUMALOG [Concomitant]
  14. REGLAN [Concomitant]
  15. PROTONIX [Concomitant]
  16. XANAX [Concomitant]
  17. COLACE [Concomitant]
  18. DARVOCET [Concomitant]
  19. FLONASE [Concomitant]
  20. ALLEGRA [Concomitant]
  21. PREDNISONE [Concomitant]
  22. PROZAC [Concomitant]
  23. AMBIEN [Concomitant]
  24. CEFTIN [Concomitant]
  25. POTASSIUM CHLORIDE [Concomitant]
  26. MULTIVITAMIN [Concomitant]

REACTIONS (1)
  - Syncope [Unknown]
